FAERS Safety Report 5351402-0 (Version None)
Quarter: 2007Q2

REPORT INFORMATION
  Report Type: 
  Country: None (occurrence: None)
  Receive Date: 20070608
  Receipt Date: 20070529
  Transmission Date: 20071010
  Serious: Yes (Other)
  Sender: FDA-Public Use
  Company Number: CH-PFIZER INC-2007045962

PATIENT
  Sex: Male

DRUGS (1)
  1. SUTENT [Suspect]

REACTIONS (6)
  - ABDOMINAL PAIN UPPER [None]
  - ANOREXIA [None]
  - CHOLESTASIS [None]
  - HEPATIC ENZYME ABNORMAL [None]
  - HYPERHIDROSIS [None]
  - INFECTION IN AN IMMUNOCOMPROMISED HOST [None]
